FAERS Safety Report 20298603 (Version 1)
Quarter: 2022Q1

REPORT INFORMATION
  Report Type: Report from Study
  Country: US (occurrence: US)
  Receive Date: 20220105
  Receipt Date: 20220105
  Transmission Date: 20220423
  Serious: Yes (Hospitalization)
  Sender: FDA-Public Use
  Company Number: US-MYLANLABS-2022M1000341

PATIENT
  Sex: Male

DRUGS (8)
  1. CIDOFOVIR [Suspect]
     Active Substance: CIDOFOVIR
     Indication: Necrotising retinitis
     Dosage: UNK
     Route: 042
  2. CIDOFOVIR [Suspect]
     Active Substance: CIDOFOVIR
     Indication: Herpes simplex
  3. PREDNISONE [Suspect]
     Active Substance: PREDNISONE
     Indication: Necrotising retinitis
     Dosage: UNK
     Route: 065
  4. PREDNISONE [Suspect]
     Active Substance: PREDNISONE
     Indication: Herpes simplex
  5. FOSCARNET [Suspect]
     Active Substance: FOSCARNET
     Indication: Necrotising retinitis
     Dosage: UNK
  6. FOSCARNET [Suspect]
     Active Substance: FOSCARNET
     Indication: Herpes simplex
  7. METHYLPREDNISOLONE [Suspect]
     Active Substance: METHYLPREDNISOLONE
     Indication: Necrotising retinitis
     Dosage: UNK
     Route: 042
  8. METHYLPREDNISOLONE [Suspect]
     Active Substance: METHYLPREDNISOLONE
     Indication: Herpes simplex

REACTIONS (1)
  - Drug ineffective [Unknown]
